FAERS Safety Report 7408208-8 (Version None)
Quarter: 2011Q2

REPORT INFORMATION
  Report Type: 
  Country: None (occurrence: None)
  Receive Date: 20110412
  Receipt Date: 20101209
  Transmission Date: 20111010
  Serious: Yes (Hospitalization, Other)
  Sender: FDA-Public Use
  Company Number: US-BAYER-201016109NA

PATIENT
  Age: 42 Year
  Sex: Female
  Weight: 81.818 kg

DRUGS (9)
  1. ASPIRIN [Concomitant]
     Dosage: 81 MG, UNK
  2. YASMIN [Suspect]
     Indication: PRODUCT USED FOR UNKNOWN INDICATION
     Route: 048
     Dates: start: 20010901, end: 20050101
  3. PROTONIX [Concomitant]
  4. YAZ [Suspect]
     Indication: PRODUCT USED FOR UNKNOWN INDICATION
     Route: 048
  5. KARIVA [Concomitant]
  6. YASMIN [Suspect]
     Dosage: UNK
     Dates: start: 20050101, end: 20050101
  7. MICARDIS HCT [Concomitant]
  8. EFFEXOR XR [Concomitant]
  9. FLONASE [Concomitant]

REACTIONS (5)
  - PULMONARY INFARCTION [None]
  - DEEP VEIN THROMBOSIS [None]
  - COR PULMONALE ACUTE [None]
  - PULMONARY EMBOLISM [None]
  - RESPIRATORY DISORDER [None]
